FAERS Safety Report 23965898 (Version 2)
Quarter: 2025Q1

REPORT INFORMATION
  Report Type: Report from Study
  Country: US (occurrence: US)
  Receive Date: 20240612
  Receipt Date: 20250114
  Transmission Date: 20250409
  Serious: No
  Sender: ALEXION PHARMACEUTICALS
  Company Number: US-ALXN-A202207293

PATIENT
  Age: 56 Year

DRUGS (24)
  1. STRENSIQ [Suspect]
     Active Substance: ASFOTASE ALFA
     Indication: Hypophosphatasia
     Dosage: 94 MG, TIW
  2. STRENSIQ [Suspect]
     Active Substance: ASFOTASE ALFA
     Dosage: 94 MG, TIW
     Route: 058
  3. STRENSIQ [Suspect]
     Active Substance: ASFOTASE ALFA
     Dosage: 94 MG, TIW
  4. STRENSIQ [Suspect]
     Active Substance: ASFOTASE ALFA
     Dosage: 94 MG, TIW
     Route: 058
  5. STRENSIQ [Suspect]
     Active Substance: ASFOTASE ALFA
     Dosage: 80 MG, TIW
     Route: 065
  6. STRENSIQ [Suspect]
     Active Substance: ASFOTASE ALFA
     Dosage: 80 MG, TIW
     Route: 065
  7. STRENSIQ [Suspect]
     Active Substance: ASFOTASE ALFA
     Dosage: 80 MG, TIW
     Route: 065
  8. STRENSIQ [Suspect]
     Active Substance: ASFOTASE ALFA
     Dosage: 80 MG, TIW
     Route: 065
  9. STRENSIQ [Suspect]
     Active Substance: ASFOTASE ALFA
     Dosage: 40 MG, QW
     Route: 065
  10. STRENSIQ [Suspect]
     Active Substance: ASFOTASE ALFA
     Dosage: 40 MG, QW
     Route: 065
  11. STRENSIQ [Suspect]
     Active Substance: ASFOTASE ALFA
     Dosage: 40 MG, QW
     Route: 065
  12. STRENSIQ [Suspect]
     Active Substance: ASFOTASE ALFA
     Dosage: 40 MG, QW
     Route: 065
  13. STRENSIQ [Suspect]
     Active Substance: ASFOTASE ALFA
     Dosage: 0.8 MILLIGRAM, 2 TIMES A WEEK
     Route: 065
  14. STRENSIQ [Suspect]
     Active Substance: ASFOTASE ALFA
     Dosage: 0.8 MILLIGRAM, 2 TIMES A WEEK
     Route: 065
  15. STRENSIQ [Suspect]
     Active Substance: ASFOTASE ALFA
     Dosage: 0.8 MILLIGRAM, 2 TIMES A WEEK
     Route: 065
  16. STRENSIQ [Suspect]
     Active Substance: ASFOTASE ALFA
     Dosage: 0.8 MILLIGRAM, 2 TIMES A WEEK
     Route: 065
  17. STRENSIQ [Suspect]
     Active Substance: ASFOTASE ALFA
     Dosage: 0.4 MILLIGRAM, QW
     Route: 065
  18. STRENSIQ [Suspect]
     Active Substance: ASFOTASE ALFA
     Dosage: 0.4 MILLIGRAM, QW
     Route: 065
  19. STRENSIQ [Suspect]
     Active Substance: ASFOTASE ALFA
     Dosage: 0.4 MILLIGRAM, QW
     Route: 065
  20. STRENSIQ [Suspect]
     Active Substance: ASFOTASE ALFA
     Dosage: 0.4 MILLIGRAM, QW
     Route: 065
  21. MAGNESIUM [Concomitant]
     Active Substance: MAGNESIUM
     Route: 065
  22. MAGNESIUM [Concomitant]
     Active Substance: MAGNESIUM
     Route: 065
  23. VITAMINS [Concomitant]
     Active Substance: VITAMINS
     Route: 065
  24. VITAMINS [Concomitant]
     Active Substance: VITAMINS
     Route: 065

REACTIONS (22)
  - Muscle spasms [Unknown]
  - Dehydration [Unknown]
  - Insomnia [Unknown]
  - Pain [Unknown]
  - Injection site discomfort [Unknown]
  - Oropharyngeal pain [Unknown]
  - Nerve compression [Unknown]
  - Tooth fracture [Unknown]
  - Arthralgia [Unknown]
  - Fatigue [Unknown]
  - Bursitis [Unknown]
  - Intervertebral disc protrusion [Recovering/Resolving]
  - Back pain [Recovering/Resolving]
  - Injection site pain [Unknown]
  - Injection site mass [Unknown]
  - Injection site bruising [Not Recovered/Not Resolved]
  - Injection site erythema [Unknown]
  - Injection site pruritus [Unknown]
  - Injection site haemorrhage [Unknown]
  - Injection site reaction [Unknown]
  - Drug ineffective [Unknown]
  - Bone pain [Unknown]
